FAERS Safety Report 6212171-5 (Version None)
Quarter: 2009Q2

REPORT INFORMATION
  Report Type: 
  Country: None (occurrence: None)
  Receive Date: 20090602
  Receipt Date: 20090602
  Transmission Date: 20091009
  Serious: Yes (Other)
  Sender: FDA-Public Use
  Company Number: US-PFIZER INC-2009175758

PATIENT
  Sex: Female
  Weight: 87.075 kg

DRUGS (5)
  1. ZOLOFT [Suspect]
     Indication: ANXIETY
     Dates: start: 19990901
  2. NASACORT AQ [Concomitant]
     Dosage: UNK
  3. BENADRYL SKIN ALLERGY RELIEF [Concomitant]
     Dosage: UNK
  4. PROVERA [Concomitant]
  5. VITAMIN TAB [Concomitant]

REACTIONS (7)
  - EAR INFECTION [None]
  - EAR PAIN [None]
  - MENSTRUATION IRREGULAR [None]
  - POSTPARTUM DEPRESSION [None]
  - SENSORY DISTURBANCE [None]
  - TREMOR [None]
  - VERTIGO [None]
